FAERS Safety Report 6396573-2 (Version None)
Quarter: 2009Q4

REPORT INFORMATION
  Report Type: 
  Country: None (occurrence: None)
  Receive Date: 20091012
  Receipt Date: 20090916
  Transmission Date: 20100525
  Serious: Yes (Other)
  Sender: FDA-Public Use
  Company Number: KR-PFIZER INC-2008154814

PATIENT
  Age: 68 Year

DRUGS (12)
  1. VFEND [Suspect]
     Indication: BRONCHOPULMONARY ASPERGILLOSIS
     Dosage: 200 MG, 2X/DAY
     Route: 048
     Dates: start: 20070706, end: 20080709
  2. VFEND [Suspect]
     Dosage: 200 MG, 1X/DAY
     Dates: start: 20070714, end: 20070831
  3. SULFAMETHOXAZOLE AND TRIMETHOPRIM [Concomitant]
     Indication: PNEUMONIA
     Dosage: 15 ML, 1X/DAY
     Route: 042
     Dates: start: 20070706, end: 20070708
  4. SULFAMETHOXAZOLE AND TRIMETHOPRIM [Concomitant]
     Dosage: 20 ML, 2X/DAY
     Route: 042
     Dates: start: 20080706, end: 20080708
  5. SULFAMETHOXAZOLE AND TRIMETHOPRIM [Concomitant]
     Dosage: UNK
  6. METFORMIN [Concomitant]
     Indication: DIABETES MELLITUS
     Dosage: 1700 MG, 2X/DAY
     Route: 048
     Dates: start: 20070406, end: 20070708
  7. FAMOTIDINE [Concomitant]
     Indication: PROPHYLAXIS AGAINST GASTROINTESTINAL ULCER
     Dosage: 40 MG, 2X/DAY
     Route: 048
     Dates: start: 20070519
  8. VOGLIBOSE [Concomitant]
     Indication: DIABETES MELLITUS
     Dosage: 0.9 MG, 3X/DAY
     Route: 048
     Dates: start: 20070406
  9. CYCLOSPORINE [Concomitant]
     Indication: IMMUNOSUPPRESSION
     Dosage: 100 MG, 2X/DAY
     Route: 048
     Dates: start: 20070522
  10. TRIMAPRIM [Concomitant]
     Indication: IMMUNOSUPPRESSION
     Dosage: UNK
     Route: 048
     Dates: start: 20070406
  11. SULFAMETHOXAZOLE AND TRIMETHOPRIM [Concomitant]
     Indication: IMMUNOSUPPRESSION
     Dosage: 960 MG, 2X/WEEK
     Route: 048
     Dates: start: 20070406
  12. SULFAMETHOXAZOLE AND TRIMETHOPRIM [Concomitant]
     Indication: INFECTION PROPHYLAXIS

REACTIONS (5)
  - CONDITION AGGRAVATED [None]
  - DIABETIC NEPHROPATHY [None]
  - DYSPNOEA [None]
  - RENAL FAILURE ACUTE [None]
  - SEPTIC SHOCK [None]
